FAERS Safety Report 6572143-8 (Version None)
Quarter: 2010Q1

REPORT INFORMATION
  Report Type: 
  Country: None (occurrence: None)
  Receive Date: 20100205
  Receipt Date: 20100203
  Transmission Date: 20100710
  Serious: Yes (Hospitalization)
  Sender: FDA-Public Use
  Company Number: A0812386A

PATIENT
  Age: 43 Year
  Sex: Male

DRUGS (6)
  1. ADVAIR DISKUS 100/50 [Suspect]
     Indication: CHRONIC OBSTRUCTIVE PULMONARY DISEASE
     Dosage: 1PUFF TWICE PER DAY
     Route: 055
     Dates: start: 20090301
  2. UNSPECIFIED INHALER [Concomitant]
  3. ALBUTEROL [Concomitant]
  4. IBUPROFEN [Concomitant]
  5. FLONASE [Concomitant]
     Route: 065
  6. SINGULAIR [Concomitant]
     Route: 065

REACTIONS (8)
  - ASTHMA [None]
  - BACK PAIN [None]
  - COMA [None]
  - LIFE SUPPORT [None]
  - MECHANICAL VENTILATION [None]
  - PNEUMONIA [None]
  - PNEUMONIA PRIMARY ATYPICAL [None]
  - RESPIRATORY FAILURE [None]
